FAERS Safety Report 8676561 (Version 2)
Quarter: 2013Q4

REPORT INFORMATION
  Report Type: Spontaneous
  Country: NO (occurrence: NO)
  Receive Date: 20120722
  Receipt Date: 20131031
  Transmission Date: 20140711
  Serious: Yes (Death, Other)
  Sender: FDA-Public Use
  Company Number: NO-009507513-1207NOR004539

PATIENT
  Sex: Male

DRUGS (1)
  1. CARBIDOPA (+) LEVODOPA [Suspect]
     Dates: start: 2006, end: 2010

REACTIONS (5)
  - Cerebrovascular accident [Fatal]
  - Gastritis [Recovered/Resolved]
  - Mental disorder [Unknown]
  - Overdose [Unknown]
  - Device dislocation [Recovered/Resolved]
